FAERS Safety Report 25371561 (Version 1)
Quarter: 2025Q2

REPORT INFORMATION
  Report Type: Report from Study
  Country: DK (occurrence: DK)
  Receive Date: 20250529
  Receipt Date: 20250529
  Transmission Date: 20250717
  Serious: Yes (Death)
  Sender: ROCHE
  Company Number: DK-ROCHE-10000296323

PATIENT
  Age: 57 Year
  Sex: Male

DRUGS (1)
  1. ALECENSA [Suspect]
     Active Substance: ALECTINIB HYDROCHLORIDE
     Indication: Non-small cell lung cancer
     Route: 048
     Dates: start: 20210728

REACTIONS (1)
  - Photosensitivity reaction [Fatal]

NARRATIVE: CASE EVENT DATE: 20210901
